FAERS Safety Report 8177014-1 (Version None)
Quarter: 2012Q1

REPORT INFORMATION
  Report Type: 
  Country: None (occurrence: None)
  Receive Date: 20120301
  Receipt Date: 20120224
  Transmission Date: 20120608
  Serious: Yes (Hospitalization)
  Sender: FDA-Public Use
  Company Number: US-ABBOTT-12P-163-0908705-00

PATIENT
  Sex: Female
  Weight: 77.18 kg

DRUGS (7)
  1. CRESTOR [Concomitant]
     Indication: BLOOD CHOLESTEROL INCREASED
  2. HUMIRA [Suspect]
     Indication: PSORIATIC ARTHROPATHY
  3. HUMIRA [Suspect]
     Indication: PSORIATIC ARTHROPATHY
     Dates: start: 20100101, end: 20111001
  4. VASOTEC [Concomitant]
     Indication: HYPERTENSION
  5. SYNTHROID [Concomitant]
     Indication: HYPOTHYROIDISM
  6. HUMIRA [Suspect]
     Indication: PSORIASIS
     Dates: start: 20100101, end: 20100101
  7. HUMIRA [Suspect]
     Indication: PSORIASIS
     Dates: start: 20120201

REACTIONS (7)
  - GAIT DISTURBANCE [None]
  - NUCLEAR MAGNETIC RESONANCE IMAGING ABNORMAL [None]
  - ARTHRALGIA [None]
  - PARAESTHESIA [None]
  - JOINT LOCK [None]
  - DRUG INEFFECTIVE [None]
  - MOBILITY DECREASED [None]
